FAERS Safety Report 22166957 (Version 1)
Quarter: 2023Q2

REPORT INFORMATION
  Report Type: Spontaneous
  Country: US (occurrence: US)
  Receive Date: 20230403
  Receipt Date: 20230403
  Transmission Date: 20230722
  Serious: Yes (Hospitalization, Other)
  Sender: FDA-Public Use
  Company Number: US-GALDERMA-US2023004713

PATIENT

DRUGS (4)
  1. DOXYCYCLINE [Suspect]
     Active Substance: DOXYCYCLINE
     Indication: Upper respiratory tract infection
     Dosage: 1 DOSAGE FORM
     Route: 065
  2. DOXYCYCLINE [Suspect]
     Active Substance: DOXYCYCLINE
     Indication: Sinusitis
  3. METFORMIN [Concomitant]
     Active Substance: METFORMIN HYDROCHLORIDE
     Indication: Diabetes mellitus
     Dosage: 1 DOSAGE FORM
     Route: 065
  4. ACETAMINOPHEN [Concomitant]
     Active Substance: ACETAMINOPHEN
     Indication: Product used for unknown indication
     Dosage: 1 DOSAGE FORM
     Route: 065

REACTIONS (8)
  - Drug-induced liver injury [Recovered/Resolved]
  - Hepatitis E [Unknown]
  - Jaundice [Unknown]
  - Abdominal pain [Unknown]
  - Vomiting [Unknown]
  - Nausea [Unknown]
  - Chromaturia [Unknown]
  - Intentional product use issue [Recovered/Resolved]
